FAERS Safety Report 8476271-1 (Version None)
Quarter: 2012Q2

REPORT INFORMATION
  Report Type: 
  Country: None (occurrence: None)
  Receive Date: 20120619
  Receipt Date: 20120607
  Transmission Date: 20120825
  Serious: Yes (Other)
  Sender: FDA-Public Use
  Company Number: DSA_57905_2012

PATIENT

DRUGS (2)
  1. METRONIDAZOLE [Suspect]
     Indication: ABDOMINAL INFECTION
     Dosage: (1 G TO 2 G DAILY (DIVIDED INTO MULTIPLE MDOSES))
  2. CEFTRIAXONE [Suspect]
     Indication: ABDOMINAL INFECTION
     Dosage: (2 G QD INTRAVENOUS (NOT OTHERWISE SPECIFIED))
     Route: 042

REACTIONS (1)
  - CLOSTRIDIAL INFECTION [None]
